FAERS Safety Report 5340114-5 (Version None)
Quarter: 2007Q2

REPORT INFORMATION
  Report Type: 
  Country: None (occurrence: None)
  Receive Date: 20070525
  Receipt Date: 20070525
  Transmission Date: 20071010
  Serious: Yes (Hospitalization)
  Sender: FDA-Public Use
  Company Number: None

PATIENT
  Age: 68 Year
  Sex: Female
  Weight: 113 kg

DRUGS (4)
  1. ERYTHROMYCIN [Suspect]
     Indication: IMPAIRED GASTRIC EMPTYING
     Dosage: 500 MG IV Q6H
     Route: 042
     Dates: start: 20061226, end: 20061228
  2. METOCLOPRAMIDE [Suspect]
     Indication: IMPAIRED GASTRIC EMPTYING
     Dosage: 10 MG PO Q6H
     Route: 048
     Dates: start: 20061226, end: 20061228
  3. MEGACE [Concomitant]
  4. DIFLUCAN [Concomitant]

REACTIONS (2)
  - ELECTROCARDIOGRAM QT CORRECTED INTERVAL PROLONGED [None]
  - TORSADE DE POINTES [None]
